FAERS Safety Report 16015735 (Version 2)
Quarter: 2020Q3

REPORT INFORMATION
  Report Type: Spontaneous
  Country: US (occurrence: US)
  Receive Date: 20190228
  Receipt Date: 20200819
  Transmission Date: 20201102
  Serious: No
  Sender: FDA-Public Use
  Company Number: US-ELI_LILLY_AND_COMPANY-US201902012579

PATIENT
  Age: 75 Year
  Sex: Male

DRUGS (4)
  1. HUMALOG MIX75/25 [Suspect]
     Active Substance: INSULIN LISPRO
     Indication: PRODUCT USED FOR UNKNOWN INDICATION
     Dosage: 54 U, UNKNOWN 48/54 UNITS AFTER EACH MEAL
     Route: 065
     Dates: start: 2017
  2. HUMALOG MIX75/25 [Suspect]
     Active Substance: INSULIN LISPRO
     Dosage: 54 U, UNKNOWN 48/54 UNITS AFTER EACH MEAL
     Route: 065
  3. HUMALOG MIX75/25 [Suspect]
     Active Substance: INSULIN LISPRO
     Dosage: UNK UNK, UNKNOWN (48/54 UNITS AFTER EACH MEAL)
     Route: 058
  4. HUMALOG MIX75/25 [Suspect]
     Active Substance: INSULIN LISPRO
     Dosage: 54 U, UNKNOWN 48/54 UNITS AFTER EACH MEAL
     Route: 065

REACTIONS (3)
  - Blood glucose increased [Recovered/Resolved]
  - Dyspnoea [Recovered/Resolved]
  - Blood glucose increased [Unknown]

NARRATIVE: CASE EVENT DATE: 20190220
